FAERS Safety Report 6470780-2 (Version None)
Quarter: 2009Q4

REPORT INFORMATION
  Report Type: 
  Country: None (occurrence: None)
  Receive Date: 20091203
  Receipt Date: 20091127
  Transmission Date: 20100525
  Serious: Yes (Hospitalization)
  Sender: FDA-Public Use
  Company Number: B0610412A

PATIENT
  Sex: Male

DRUGS (2)
  1. SEROXAT [Suspect]
     Indication: DEPRESSION
     Route: 065
     Dates: start: 20000101
  2. CLARITHROMYCIN [Suspect]
     Indication: TOOTH ABSCESS
     Dosage: 1000MG PER DAY
     Route: 048
     Dates: start: 20091119, end: 20091123

REACTIONS (8)
  - DRUG INTERACTION [None]
  - DYSKINESIA [None]
  - DYSPHEMIA [None]
  - GAIT DISTURBANCE [None]
  - MUSCULOSKELETAL STIFFNESS [None]
  - RESPIRATORY DISORDER [None]
  - SYNCOPE [None]
  - TREMOR [None]
